FAERS Safety Report 6096753-X (Version None)
Quarter: 2009Q1

REPORT INFORMATION
  Report Type: 
  Country: None (occurrence: None)
  Receive Date: 20090227
  Receipt Date: 20090209
  Transmission Date: 20090719
  Serious: Yes (Hospitalization)
  Sender: FDA-Public Use
  Company Number: FI-BIOGENIDEC-2009BI000914

PATIENT
  Age: 38 Year
  Sex: Male
  Weight: 99 kg

DRUGS (5)
  1. AVONEX [Suspect]
     Indication: MULTIPLE SCLEROSIS
     Route: 030
     Dates: start: 20081001, end: 20081110
  2. AVONEX [Suspect]
     Route: 030
     Dates: start: 20081218
  3. CIPRALEX [Concomitant]
     Indication: DEPRESSION
     Route: 048
     Dates: start: 20080701
  4. BURANA [Concomitant]
     Indication: HEADACHE
     Route: 048
     Dates: start: 20080801
  5. ATARIN [Concomitant]
     Indication: FATIGUE

REACTIONS (2)
  - ALCOHOL ABUSE [None]
  - INSOMNIA [None]
